FAERS Safety Report 6185581-2 (Version None)
Quarter: 2009Q2

REPORT INFORMATION
  Report Type: 
  Country: None (occurrence: None)
  Receive Date: 20090507
  Receipt Date: 20090423
  Transmission Date: 20091009
  Serious: Yes (Hospitalization)
  Sender: FDA-Public Use
  Company Number: 2009PL000187

PATIENT
  Age: 62 Year
  Sex: Male

DRUGS (2)
  1. AZATHIOPRINE [Suspect]
     Indication: COLITIS ULCERATIVE
     Dosage: 100 MG; QD; PO
     Route: 048
     Dates: start: 20010501, end: 20021201
  2. STEROIDS [Concomitant]

REACTIONS (6)
  - ABDOMINAL PAIN [None]
  - HAEMATOCHEZIA [None]
  - HYPOPROTEINAEMIA [None]
  - KAPOSI'S SARCOMA [None]
  - LEUKOCYTOSIS [None]
  - LYMPHOPENIA [None]
